FAERS Safety Report 13940689 (Version 2)
Quarter: 2017Q3

REPORT INFORMATION
  Report Type: Spontaneous
  Country: BE (occurrence: BE)
  Receive Date: 20170906
  Receipt Date: 20170913
  Transmission Date: 20171127
  Serious: Yes (Hospitalization)
  Sender: FDA-Public Use
  Company Number: BE-NORTHSTAR HEALTHCARE HOLDINGS-BE-2017NSR000191

PATIENT

DRUGS (2)
  1. CLONAZEPAM. [Suspect]
     Active Substance: CLONAZEPAM
     Indication: PRODUCT USED FOR UNKNOWN INDICATION
     Dosage: 100 DF, SINGLE
     Route: 048
  2. PROPRANOLOL HYDROCHLORIDE. [Suspect]
     Active Substance: PROPRANOLOL HYDROCHLORIDE
     Indication: PRODUCT USED FOR UNKNOWN INDICATION
     Dosage: 3.6 G, SINGLE
     Route: 048

REACTIONS (5)
  - Overdose [Unknown]
  - Bradycardia [Unknown]
  - Altered state of consciousness [Unknown]
  - Multiple organ dysfunction syndrome [Unknown]
  - Hypotension [Unknown]
